FAERS Safety Report 8107692-4 (Version None)
Quarter: 2012Q1

REPORT INFORMATION
  Report Type: 
  Country: None (occurrence: None)
  Receive Date: 20120202
  Receipt Date: 20120201
  Transmission Date: 20120608
  Serious: Yes (Other)
  Sender: FDA-Public Use
  Company Number: US-BAYER-2012-010221

PATIENT
  Age: 65 Year
  Sex: Female

DRUGS (4)
  1. KLONOPIN [Concomitant]
     Dosage: 1 MG, TID
  2. ACETAMINOPHEN [Concomitant]
  3. CYMBALTA [Concomitant]
     Dosage: 100 MG, BID
  4. BETASERON [Suspect]
     Indication: MULTIPLE SCLEROSIS
     Dosage: 6 MIU, QOD
     Route: 058
     Dates: start: 20120104

REACTIONS (4)
  - DEPRESSION [None]
  - BACK PAIN [None]
  - BIPOLAR DISORDER [None]
  - CRYING [None]
